FAERS Safety Report 5757444-5 (Version None)
Quarter: 2008Q2

REPORT INFORMATION
  Report Type: 
  Country: None (occurrence: None)
  Receive Date: 20080603
  Receipt Date: 20080530
  Transmission Date: 20081010
  Serious: Yes (Hospitalization)
  Sender: FDA-Public Use
  Company Number: JP-BOEHRINGER INGELHEIM GMBH, GERMANY-2008-BP-06733NB

PATIENT
  Sex: Female
  Weight: 62.5 kg

DRUGS (6)
  1. MICARDIS [Suspect]
     Indication: HYPERTENSION
     Route: 048
     Dates: end: 20080413
  2. NORVASC [Concomitant]
     Route: 048
     Dates: end: 20080413
  3. MAGMITT [Concomitant]
     Route: 048
     Dates: end: 20080412
  4. CERENAMELIN [Concomitant]
     Route: 048
     Dates: end: 20080412
  5. TOWAZUREN [Concomitant]
     Route: 048
     Dates: end: 20080412
  6. KETOPROFEN [Concomitant]
     Route: 062
     Dates: end: 20080413

REACTIONS (1)
  - HYPOGLYCAEMIA [None]
